FAERS Safety Report 7077407-X (Version None)
Quarter: 2010Q4

REPORT INFORMATION
  Report Type: 
  Country: None (occurrence: None)
  Receive Date: 20101101
  Receipt Date: 20101019
  Transmission Date: 20110411
  Serious: Yes (Other)
  Sender: FDA-Public Use
  Company Number: US-JNJFOC-20101005849

PATIENT
  Age: 28 Year
  Sex: Female
  Weight: 88.45 kg

DRUGS (1)
  1. TYLENOL COLD MULTI-SYMPTOM SEVERE DAYTIME COOL BURST [Suspect]
     Indication: INFLUENZA LIKE ILLNESS
     Dosage: 2 TABLESPOONS, TWICE
     Route: 048

REACTIONS (4)
  - DEHYDRATION [None]
  - HYPERSENSITIVITY [None]
  - RASH ERYTHEMATOUS [None]
  - SWELLING [None]
